FAERS Safety Report 6837478-X (Version None)
Quarter: 2010Q3

REPORT INFORMATION
  Report Type: 
  Country: None (occurrence: None)
  Receive Date: 20100713
  Receipt Date: 20070514
  Transmission Date: 20110219
  Serious: Yes (Other)
  Sender: FDA-Public Use
  Company Number: US-PFIZER INC-2007039274

PATIENT
  Sex: Male
  Weight: 75 kg

DRUGS (7)
  1. CHANTIX [Suspect]
     Indication: SMOKING CESSATION THERAPY
     Dates: start: 20070101
  2. VICODIN [Concomitant]
  3. KLONOPIN [Concomitant]
  4. ZIPRASIDONE HCL [Concomitant]
  5. GABAPENTIN [Concomitant]
  6. TRILEPTAL [Concomitant]
  7. TEMAZEPAM [Concomitant]
     Indication: SLEEP DISORDER THERAPY
     Dosage: AS NEEDED

REACTIONS (5)
  - ABNORMAL DREAMS [None]
  - DYSGEUSIA [None]
  - MUSCULAR WEAKNESS [None]
  - PAROSMIA [None]
  - TREMOR [None]
